FAERS Safety Report 4577206-4 (Version None)
Quarter: 2005Q1

REPORT INFORMATION
  Report Type: 
  Country: None (occurrence: None)
  Receive Date: 20050208
  Receipt Date: 20050126
  Transmission Date: 20050727
  Serious: Yes (Life-Threatening, Hospitalization, Other)
  Sender: FDA-Public Use
  Company Number: 2005-0007983

PATIENT
  Age: 41 Year
  Sex: Male

DRUGS (3)
  1. VIREAD [Suspect]
     Indication: HIV INFECTION
     Dosage: 300 MG, 1 IN 1 D, ORAL
     Route: 048
     Dates: start: 20040121, end: 20041204
  2. PERCOCET [Concomitant]
  3. SEROSTIM [Concomitant]

REACTIONS (15)
  - BACK PAIN [None]
  - BLOOD CULTURE POSITIVE [None]
  - DIALYSIS [None]
  - ELECTROCARDIOGRAM ST-T CHANGE [None]
  - ENCEPHALOPATHY [None]
  - HEPATITIS [None]
  - HYPERKALAEMIA [None]
  - HYPOACUSIS [None]
  - INTERSTITIAL LUNG DISEASE [None]
  - RENAL FAILURE ACUTE [None]
  - RESPIRATORY FAILURE [None]
  - RHABDOMYOLYSIS [None]
  - SPUTUM CULTURE POSITIVE [None]
  - STAPHYLOCOCCAL INFECTION [None]
  - TROPONIN INCREASED [None]
